FAERS Safety Report 20851117 (Version 1)
Quarter: 2022Q2

REPORT INFORMATION
  Report Type: Report from Study
  Country: GB (occurrence: GB)
  Receive Date: 20220519
  Receipt Date: 20220519
  Transmission Date: 20220720
  Serious: Yes (Other)
  Sender: FDA-Public Use
  Company Number: GB-TEVA-2022-GB-2036877

PATIENT
  Sex: Female

DRUGS (1)
  1. AJOVY [Suspect]
     Active Substance: FREMANEZUMAB-VFRM
     Dosage: LAST INJECTION - 29/04

REACTIONS (4)
  - Dyspnoea [Unknown]
  - Lip swelling [Unknown]
  - Hypersensitivity [Unknown]
  - Obstructive airways disorder [Unknown]
